FAERS Safety Report 13402437 (Version 2)
Quarter: 2017Q2

REPORT INFORMATION
  Report Type: Report from Study
  Country: JP (occurrence: JP)
  Receive Date: 20170404
  Receipt Date: 20170428
  Transmission Date: 20170830
  Serious: Yes (Hospitalization)
  Sender: FDA-Public Use
  Company Number: PHJP2017JP010931

PATIENT
  Age: 34 Year
  Sex: Male

DRUGS (53)
  1. CERTICAN [Suspect]
     Active Substance: EVEROLIMUS
     Dosage: 1.25 MG, QD
     Route: 048
     Dates: start: 20101013, end: 20101021
  2. CERTICAN [Suspect]
     Active Substance: EVEROLIMUS
     Dosage: UNK
     Route: 048
     Dates: start: 20170105
  3. PROGRAF [Suspect]
     Active Substance: TACROLIMUS\TACROLIMUS ANHYDROUS
     Dosage: 0.9 MG, QD
     Route: 048
     Dates: start: 20101210
  4. PROGRAF [Suspect]
     Active Substance: TACROLIMUS\TACROLIMUS ANHYDROUS
     Dosage: 0.9 MG, QD
     Route: 048
     Dates: start: 20170119
  5. METGLUCO [Concomitant]
     Active Substance: METFORMIN HYDROCHLORIDE
     Indication: DIABETES MELLITUS
     Dosage: 2250 MG, UNK
     Route: 048
     Dates: start: 20130416, end: 20161226
  6. LANTUS [Concomitant]
     Active Substance: INSULIN GLARGINE
     Indication: DIABETES MELLITUS
     Dosage: UNK
     Route: 058
     Dates: start: 20151216, end: 20161229
  7. CERTICAN [Suspect]
     Active Substance: EVEROLIMUS
     Dosage: 1 MG, QD
     Route: 048
     Dates: start: 20101022, end: 20101111
  8. CERTICAN [Suspect]
     Active Substance: EVEROLIMUS
     Dosage: 1.25 MG, QD
     Route: 048
     Dates: start: 20160729, end: 20161116
  9. CERTICAN [Suspect]
     Active Substance: EVEROLIMUS
     Dosage: 1.25 MG, QD
     Route: 048
     Dates: start: 20161215, end: 20161219
  10. PROGRAF [Suspect]
     Active Substance: TACROLIMUS\TACROLIMUS ANHYDROUS
     Dosage: 0.9 MG, QD
     Route: 048
     Dates: start: 20170103, end: 20170103
  11. PROGRAF [Suspect]
     Active Substance: TACROLIMUS\TACROLIMUS ANHYDROUS
     Dosage: 0.7 MG, QD
     Route: 048
     Dates: start: 20170104, end: 20170104
  12. PROGRAF [Suspect]
     Active Substance: TACROLIMUS\TACROLIMUS ANHYDROUS
     Dosage: 1 MG, QD
     Route: 048
     Dates: start: 20170111, end: 20170118
  13. GLYCORAN [Concomitant]
     Active Substance: GLYCERIN
     Indication: DIABETES MELLITUS
     Dosage: 500 MG, UNK
     Route: 048
     Dates: start: 20100722, end: 20101207
  14. BAYASPIRIN [Concomitant]
     Active Substance: ASPIRIN
     Indication: CORONARY ARTERY STENOSIS
     Dosage: 100 MG, UNK
     Route: 048
     Dates: start: 20071016
  15. PROGRAF [Suspect]
     Active Substance: TACROLIMUS\TACROLIMUS ANHYDROUS
     Dosage: 1.6 MG, QD
     Route: 048
     Dates: start: 20100929, end: 20101003
  16. PROGRAF [Suspect]
     Active Substance: TACROLIMUS\TACROLIMUS ANHYDROUS
     Dosage: 1 MG, QD
     Route: 048
     Dates: start: 20101203, end: 20101209
  17. PROGRAF [Suspect]
     Active Substance: TACROLIMUS\TACROLIMUS ANHYDROUS
     Dosage: 0.6 MG, QD
     Route: 048
     Dates: start: 20160213, end: 20161219
  18. GLYCORAN [Concomitant]
     Active Substance: GLYCERIN
     Indication: PROPHYLAXIS
     Dosage: 750 MG, UNK
     Route: 048
     Dates: start: 20101208
  19. BAYASPIRIN [Concomitant]
     Active Substance: ASPIRIN
     Indication: PROPHYLAXIS
     Dosage: 100 MG, UNK
     Route: 048
     Dates: start: 20150729, end: 20161222
  20. AMARYL [Concomitant]
     Active Substance: GLIMEPIRIDE
     Dosage: 1 MG, UNK
     Route: 048
     Dates: start: 20161220, end: 20161226
  21. SELARA [Concomitant]
     Active Substance: EPLERENONE
     Indication: HYPOKALAEMIA
     Dosage: UNK
     Route: 048
  22. PROGRAF [Suspect]
     Active Substance: TACROLIMUS\TACROLIMUS ANHYDROUS
     Dosage: 1.8 MG, QD
     Route: 048
     Dates: start: 20100924, end: 20100928
  23. PROGRAF [Suspect]
     Active Substance: TACROLIMUS\TACROLIMUS ANHYDROUS
     Dosage: 1.3 MG, QD
     Route: 048
     Dates: start: 20101004, end: 20101004
  24. PROGRAF [Suspect]
     Active Substance: TACROLIMUS\TACROLIMUS ANHYDROUS
     Dosage: 0.8 MG, QD
     Route: 048
     Dates: start: 20170105, end: 20170110
  25. NESINA [Concomitant]
     Active Substance: ALOGLIPTIN BENZOATE
     Dosage: 25 MG, UNK
     Route: 048
     Dates: start: 20161231
  26. LUPRAC [Concomitant]
     Active Substance: TORSEMIDE
     Indication: RENAL IMPAIRMENT
     Dosage: 8 MG, UNK
     Route: 048
     Dates: start: 20071016
  27. AMARYL [Concomitant]
     Active Substance: GLIMEPIRIDE
     Indication: DIABETES MELLITUS
     Dosage: 2 MG, UNK
     Route: 048
     Dates: start: 20150731, end: 20161219
  28. LANDSEN [Concomitant]
     Active Substance: CLONAZEPAM
     Indication: DEPRESSION
     Dosage: 0.5 MG, UNK
     Route: 048
  29. NOVORAPID [Concomitant]
     Active Substance: INSULIN ASPART
     Indication: PROPHYLAXIS
     Dosage: UNK
     Route: 058
     Dates: start: 20161220, end: 20161229
  30. CERTICAN [Suspect]
     Active Substance: EVEROLIMUS
     Indication: HEART TRANSPLANT
     Dosage: 1.5 MG, QD
     Route: 048
     Dates: start: 20100922, end: 20101012
  31. CERTICAN [Suspect]
     Active Substance: EVEROLIMUS
     Dosage: 1.5 MG, QD
     Route: 048
     Dates: start: 20161117, end: 20161214
  32. PROGRAF [Suspect]
     Active Substance: TACROLIMUS\TACROLIMUS ANHYDROUS
     Dosage: 1 MG, QD
     Route: 048
     Dates: start: 20161220, end: 20161221
  33. PROGRAF [Suspect]
     Active Substance: TACROLIMUS\TACROLIMUS ANHYDROUS
     Dosage: 1 MG, QD
     Route: 048
     Dates: start: 20170101, end: 20170102
  34. AIMIX [Concomitant]
     Active Substance: AMLODIPINE BESYLATE\IRBESARTAN
     Indication: BLOOD PRESSURE MANAGEMENT
     Dosage: 1 DF, UNK
     Route: 048
     Dates: start: 20140321
  35. CERTICAN [Suspect]
     Active Substance: EVEROLIMUS
     Dosage: 1.25 MG, QD
     Route: 048
     Dates: start: 20101112
  36. MYCOPHENOLATE [Concomitant]
     Active Substance: MYCOPHENOLIC ACID
     Indication: HEART TRANSPLANT
     Dosage: 3000 MG, UNK
     Route: 048
     Dates: start: 20100806, end: 20100921
  37. LIPITOR [Concomitant]
     Active Substance: ATORVASTATIN CALCIUM
     Indication: PROPHYLAXIS
     Dosage: 10 MG, UNK
     Route: 048
     Dates: start: 20071016
  38. NESINA [Concomitant]
     Active Substance: ALOGLIPTIN BENZOATE
     Dosage: 25 MG, UNK
     Route: 048
     Dates: start: 20110715, end: 20161226
  39. PROGRAF [Suspect]
     Active Substance: TACROLIMUS\TACROLIMUS ANHYDROUS
     Indication: HEART TRANSPLANT
     Dosage: 2 MG, QD
     Route: 048
     Dates: start: 20100806, end: 20100923
  40. PROGRAF [Suspect]
     Active Substance: TACROLIMUS\TACROLIMUS ANHYDROUS
     Dosage: 1.2 MG, QD
     Route: 048
     Dates: start: 20101005, end: 20101202
  41. PROGRAF [Suspect]
     Active Substance: TACROLIMUS\TACROLIMUS ANHYDROUS
     Dosage: 1.1 MG, QD
     Route: 048
     Dates: start: 20161222, end: 20161223
  42. PROGRAF [Suspect]
     Active Substance: TACROLIMUS\TACROLIMUS ANHYDROUS
     Dosage: 1 MG, QD
     Route: 048
     Dates: start: 20161224, end: 20161230
  43. BAKTAR [Concomitant]
     Active Substance: SULFAMETHOXAZOLE\TRIMETHOPRIM
     Indication: INFECTION PROPHYLAXIS
     Dosage: 1 DF, QW3
     Route: 048
     Dates: start: 20071017
  44. DIOVAN [Concomitant]
     Active Substance: VALSARTAN
     Indication: PROPHYLAXIS
     Dosage: 160 MG, UNK
     Route: 048
     Dates: start: 20071016
  45. NESINA [Concomitant]
     Active Substance: ALOGLIPTIN BENZOATE
     Indication: DIABETES MELLITUS
     Dosage: 12.5 MG, UNK
     Route: 048
     Dates: start: 20101214
  46. BAYASPIRIN [Concomitant]
     Active Substance: ASPIRIN
     Dosage: 100 MG, UNK
     Route: 048
     Dates: start: 20161230
  47. AMARYL [Concomitant]
     Active Substance: GLIMEPIRIDE
     Dosage: 1 MG, UNK
     Route: 048
     Dates: start: 20161231
  48. METGLUCO [Concomitant]
     Active Substance: METFORMIN HYDROCHLORIDE
     Dosage: 2250 MG, UNK
     Route: 048
     Dates: start: 20161231
  49. RYZODEG 70/30 [Concomitant]
     Active Substance: INSULIN ASPART\INSULIN DEGLUDEC
     Indication: PROPHYLAXIS
     Dosage: UNK
     Route: 058
     Dates: start: 20161230
  50. BONALON [Concomitant]
     Active Substance: ALENDRONATE SODIUM
     Indication: OSTEOPOROSIS
     Dosage: UNK
     Route: 048
     Dates: start: 20071016
  51. PROGRAF [Suspect]
     Active Substance: TACROLIMUS\TACROLIMUS ANHYDROUS
     Dosage: 1.1 MG, QD
     Route: 048
     Dates: start: 20161231, end: 20161231
  52. MYCOPHENOLATE [Concomitant]
     Active Substance: MYCOPHENOLIC ACID
     Dosage: 2000 MG, UNK
     Route: 048
     Dates: start: 20161220
  53. ZYLORIC [Concomitant]
     Active Substance: ALLOPURINOL
     Indication: HYPERURICAEMIA
     Dosage: 200 MG, UNK
     Route: 048
     Dates: start: 20090827

REACTIONS (3)
  - Cholecystitis [Recovered/Resolved]
  - Cholelithiasis [Recovered/Resolved]
  - Abdominal pain [Unknown]

NARRATIVE: CASE EVENT DATE: 20161219
